FAERS Safety Report 5851844-0 (Version None)
Quarter: 2008Q3

REPORT INFORMATION
  Report Type: 
  Country: None (occurrence: None)
  Receive Date: 20080819
  Receipt Date: 20080711
  Transmission Date: 20090109
  Serious: Yes (Other)
  Sender: FDA-Public Use
  Company Number: 2008TJ0176

PATIENT
  Age: 2 Year
  Sex: Female
  Weight: 12.7007 kg

DRUGS (1)
  1. TWINJECT 0.3 [Suspect]
     Indication: ANAPHYLACTIC REACTION
     Dosage: 0.15MG, SUBCUTANEOUS/INTRAMUSCULARLY
     Route: 058
     Dates: start: 20080709, end: 20080709

REACTIONS (3)
  - DEVICE MALFUNCTION [None]
  - DRUG ADMINISTRATION ERROR [None]
  - DRUG INEFFECTIVE [None]
